FAERS Safety Report 16151461 (Version 1)
Quarter: 2019Q2

REPORT INFORMATION
  Report Type: Spontaneous
  Country: US (occurrence: US)
  Receive Date: 20190403
  Receipt Date: 20190403
  Transmission Date: 20190711
  Serious: No
  Sender: FDA-Public Use
  Company Number: US-UPSHER-SMITH LABORATORIES, LLC-2018USL00585

PATIENT
  Sex: Female

DRUGS (3)
  1. PREVALITE [Suspect]
     Active Substance: CHOLESTYRAMINE
     Dosage: 4 G, UP TO 3X/DAY
     Route: 048
     Dates: start: 201705
  2. PREVALITE [Suspect]
     Active Substance: CHOLESTYRAMINE
     Indication: FUNCTIONAL GASTROINTESTINAL DISORDER
     Dosage: 4 G, UP TO 3X/DAY
     Route: 048
     Dates: start: 201705
  3. UNSPECIFIED MEDICATIONS [Concomitant]
     Active Substance: UNSPECIFIED INGREDIENT

REACTIONS (5)
  - Malaise [Unknown]
  - Drug ineffective for unapproved indication [Not Recovered/Not Resolved]
  - Retching [Not Recovered/Not Resolved]
  - Abdominal pain upper [Not Recovered/Not Resolved]
  - Throat irritation [Not Recovered/Not Resolved]

NARRATIVE: CASE EVENT DATE: 2018
